APPROVED DRUG PRODUCT: FLUOCINONIDE
Active Ingredient: FLUOCINONIDE
Strength: 0.05%
Dosage Form/Route: SOLUTION;TOPICAL
Application: A206003 | Product #001 | TE Code: AT
Applicant: NOVEL LABORATORIES INC
Approved: Jul 21, 2017 | RLD: No | RS: No | Type: RX